FAERS Safety Report 14193649 (Version 1)
Quarter: 2017Q4

REPORT INFORMATION
  Report Type: Spontaneous
  Country: JP (occurrence: JP)
  Receive Date: 20171116
  Receipt Date: 20171116
  Transmission Date: 20180321
  Serious: Yes (Other)
  Sender: FDA-Public Use
  Company Number: JP-ROCHE-2024900

PATIENT
  Age: 63 Year
  Sex: Male

DRUGS (2)
  1. LUCENTIS [Suspect]
     Active Substance: RANIBIZUMAB
     Indication: RETINAL VEIN OCCLUSION
     Route: 031
  2. LUCENTIS [Suspect]
     Active Substance: RANIBIZUMAB
     Indication: MACULAR OEDEMA
     Route: 050

REACTIONS (6)
  - Keratic precipitates [Recovering/Resolving]
  - Corneal oedema [Recovering/Resolving]
  - Herpes simplex test positive [Unknown]
  - Corneal endotheliitis [Unknown]
  - Eye pain [Unknown]
  - Intraocular pressure increased [Recovered/Resolved]
